FAERS Safety Report 12640644 (Version 2)
Quarter: 2016Q3

REPORT INFORMATION
  Report Type: Spontaneous
  Country: PK (occurrence: PK)
  Receive Date: 20160810
  Receipt Date: 20160826
  Transmission Date: 20161109
  Serious: Yes (Death, Other)
  Sender: FDA-Public Use
  Company Number: PHHY2016PK109167

PATIENT
  Sex: Female

DRUGS (1)
  1. VOTRIENT [Suspect]
     Active Substance: PAZOPANIB HYDROCHLORIDE
     Indication: RENAL CELL CARCINOMA
     Dosage: 800 MG, QD
     Route: 048
     Dates: start: 20151027, end: 20160429

REACTIONS (6)
  - Vertigo [Fatal]
  - Vomiting [Fatal]
  - Seizure [Unknown]
  - Headache [Fatal]
  - Foaming at mouth [Unknown]
  - Metastases to central nervous system [Fatal]
